FAERS Safety Report 9287435 (Version 1)
Quarter: 2013Q2

REPORT INFORMATION
  Report Type: Spontaneous
  Country: US (occurrence: US)
  Receive Date: 20130514
  Receipt Date: 20130514
  Transmission Date: 20140414
  Serious: No
  Sender: FDA-Public Use
  Company Number: US-ROCHE-GNE260994

PATIENT
  Age: 41 Year
  Sex: Female
  Weight: 47.22 kg

DRUGS (2)
  1. XOLAIR [Suspect]
     Indication: ASTHMA
     Dosage: UNK, 2/MONTH
     Route: 058
     Dates: start: 20080430, end: 200806
  2. XOLAIR [Suspect]
     Route: 058

REACTIONS (4)
  - Myalgia [Not Recovered/Not Resolved]
  - Alopecia [Not Recovered/Not Resolved]
  - Headache [Unknown]
  - Arthralgia [Unknown]
